FAERS Safety Report 5359193-4 (Version None)
Quarter: 2007Q2

REPORT INFORMATION
  Report Type: 
  Country: None (occurrence: None)
  Receive Date: 20070615
  Receipt Date: 20070606
  Transmission Date: 20071010
  Serious: Yes (Hospitalization)
  Sender: FDA-Public Use
  Company Number: DE-JNJFOC-20070601234

PATIENT
  Sex: Male
  Weight: 4.61 kg

DRUGS (3)
  1. VERMOX FORTE [Suspect]
     Indication: DRUG EXPOSURE DURING PREGNANCY
  2. HOMEOPATHIC DRUG [Concomitant]
  3. VITAMIN B COMPLEX FORTE [Concomitant]

REACTIONS (5)
  - ANAEMIA [None]
  - DRUG EXPOSURE DURING PREGNANCY [None]
  - HYPOTONIA [None]
  - PALLOR [None]
  - RESPIRATORY DISORDER [None]
